FAERS Safety Report 12841205 (Version 1)
Quarter: 2016Q4

REPORT INFORMATION
  Report Type: Spontaneous
  Country: FI (occurrence: FI)
  Receive Date: 20161012
  Receipt Date: 20161012
  Transmission Date: 20170207
  Serious: Yes (Death)
  Sender: FDA-Public Use
  Company Number: FI-B.I. PHARMACEUTICALS,INC./RIDGEFIELD-2016-BI-066287

PATIENT

DRUGS (1)
  1. CATAPRESAN [Suspect]
     Active Substance: CLONIDINE
     Indication: DRUG WITHDRAWAL SYNDROME
     Route: 065
     Dates: start: 2012

REACTIONS (4)
  - Hypersomnia [Fatal]
  - Sudden infant death syndrome [Fatal]
  - Withdrawal syndrome [Fatal]
  - Hypotension [Fatal]

NARRATIVE: CASE EVENT DATE: 2012
